FAERS Safety Report 6091402-9 (Version None)
Quarter: 2009Q1

REPORT INFORMATION
  Report Type: 
  Country: None (occurrence: None)
  Receive Date: 20090225
  Receipt Date: 20081230
  Transmission Date: 20090719
  Serious: No
  Sender: FDA-Public Use
  Company Number: A0761891A

PATIENT
  Age: 51 Year
  Sex: Female

DRUGS (2)
  1. VERAMYST [Suspect]
     Dosage: 2SPR PER DAY
     Route: 045
     Dates: start: 20081224, end: 20081225
  2. NO CONCURRENT MEDICATION [Concomitant]

REACTIONS (1)
  - BACK PAIN [None]
